FAERS Safety Report 18959592 (Version 1)
Quarter: 2021Q1

REPORT INFORMATION
  Report Type: Spontaneous
  Country: CN (occurrence: CN)
  Receive Date: 20210302
  Receipt Date: 20210302
  Transmission Date: 20210420
  Serious: Yes (Hospitalization)
  Sender: FDA-Public Use
  Company Number: CN-PFIZER INC-2021206584

PATIENT
  Age: 13 Year
  Sex: Female
  Weight: 85 kg

DRUGS (1)
  1. ZELDOX [Suspect]
     Active Substance: ZIPRASIDONE
     Indication: THERAPEUTIC PROCEDURE
     Dosage: 15MG, 2X/DAY
     Route: 030
     Dates: start: 20201014, end: 20201017

REACTIONS (1)
  - Muscle rigidity [Recovering/Resolving]

NARRATIVE: CASE EVENT DATE: 20201017
